FAERS Safety Report 13243141 (Version 1)
Quarter: 2017Q1

REPORT INFORMATION
  Report Type: Spontaneous
  Country: US (occurrence: US)
  Receive Date: 20170216
  Receipt Date: 20170216
  Transmission Date: 20170428
  Serious: Yes (Hospitalization, Disabling, Other)
  Sender: FDA-Public Use
  Company Number: None

PATIENT
  Age: 12 Year
  Sex: Male
  Weight: 35.1 kg

DRUGS (1)
  1. MIRALAX [Suspect]
     Active Substance: POLYETHYLENE GLYCOL 3350
     Indication: CONSTIPATION
     Dosage: ?
     Route: 048

REACTIONS (9)
  - Mental disorder [None]
  - Unevaluable event [None]
  - Aggression [None]
  - Intentional self-injury [None]
  - Depression [None]
  - Anger [None]
  - Fear [None]
  - Neuropsychiatric syndrome [None]
  - Aphasia [None]

NARRATIVE: CASE EVENT DATE: 20170101
